FAERS Safety Report 8305755-1 (Version None)
Quarter: 2012Q2

REPORT INFORMATION
  Report Type: 
  Country: None (occurrence: None)
  Receive Date: 20120418
  Receipt Date: 20120404
  Transmission Date: 20120825
  Serious: Yes (Other)
  Sender: FDA-Public Use
  Company Number: AUR-APL-2012-01717

PATIENT
  Age: 46 Year
  Sex: Female

DRUGS (7)
  1. TOBRADEX [Concomitant]
  2. BISOPROLOL FUMARATE [Concomitant]
  3. HUMIRA [Suspect]
     Indication: PYODERMA GANGRENOSUM
     Dosage: 2.8571 MG (40 MG, 1 IN 2 WK), SUBCUTANEOUS
     Route: 058
     Dates: start: 20111001
  4. LAMOTRIGINE [Suspect]
     Indication: EPILEPSY
     Dosage: 200 MG (200 MG, 1 IN 1 D), ORAL
     Route: 048
     Dates: start: 20000101
  5. LEVOTHYROXINE SODIUM [Concomitant]
  6. AMITRIPTYLINE HCL [Concomitant]
  7. LEVOTHYROXINE SODIUM [Concomitant]

REACTIONS (6)
  - MALAISE [None]
  - WEIGHT DECREASED [None]
  - OFF LABEL USE [None]
  - DIARRHOEA [None]
  - NAUSEA [None]
  - VOMITING [None]
